FAERS Safety Report 18362921 (Version 1)
Quarter: 2020Q4

REPORT INFORMATION
  Report Type: Spontaneous
  Country: US (occurrence: US)
  Receive Date: 20201009
  Receipt Date: 20201009
  Transmission Date: 20210114
  Serious: Yes (Other)
  Sender: FDA-Public Use
  Company Number: US-DRREDDYS-USA/USA/20/0127829

PATIENT
  Age: 78 Year
  Sex: Female

DRUGS (3)
  1. DECITABINE. [Suspect]
     Active Substance: DECITABINE
     Indication: PLASMA CELL MYELOMA RECURRENT
  2. DECITABINE. [Suspect]
     Active Substance: DECITABINE
     Indication: ACUTE MYELOID LEUKAEMIA
  3. DECITABINE. [Suspect]
     Active Substance: DECITABINE
     Indication: GENE MUTATION

REACTIONS (1)
  - Drug ineffective [Unknown]
